FAERS Safety Report 17693733 (Version 1)
Quarter: 2020Q2

REPORT INFORMATION
  Report Type: Spontaneous
  Country: US (occurrence: US)
  Receive Date: 20200422
  Receipt Date: 20200422
  Transmission Date: 20200714
  Serious: Yes (Hospitalization)
  Sender: FDA-Public Use
  Company Number: US-PFIZER INC-2020158502

PATIENT
  Age: 71 Year
  Sex: Female

DRUGS (1)
  1. LYRICA [Suspect]
     Active Substance: PREGABALIN
     Dosage: 1 DF, 4X/DAY
     Dates: start: 20180901

REACTIONS (4)
  - Pneumonia [Unknown]
  - Chronic obstructive pulmonary disease [Unknown]
  - Burning sensation [Unknown]
  - Respiratory failure [Unknown]
